FAERS Safety Report 7557251-7 (Version None)
Quarter: 2011Q2

REPORT INFORMATION
  Report Type: 
  Country: None (occurrence: None)
  Receive Date: 20110620
  Receipt Date: 20030725
  Transmission Date: 20111010
  Serious: Yes (Death, Hospitalization)
  Sender: FDA-Public Use
  Company Number: PHHO2003CO08221

PATIENT

DRUGS (1)
  1. ZOMETA [Suspect]
     Indication: METASTASES TO BONE
     Dosage: 4 MG, UNK
     Dates: start: 20030422

REACTIONS (9)
  - MUSCLE STRAIN [None]
  - BACK PAIN [None]
  - INTESTINAL OBSTRUCTION [None]
  - CARCINOID TUMOUR OF THE GASTROINTESTINAL TRACT [None]
  - ASCITES [None]
  - HEPATIC NEOPLASM [None]
  - PROSTATE CANCER [None]
  - NEOPLASM MALIGNANT [None]
  - DYSPEPSIA [None]
